FAERS Safety Report 7190431-1 (Version None)
Quarter: 2010Q4

REPORT INFORMATION
  Report Type: 
  Country: None (occurrence: None)
  Receive Date: 20101223
  Receipt Date: 20101216
  Transmission Date: 20110411
  Serious: Yes (Hospitalization)
  Sender: FDA-Public Use
  Company Number: DE-ELI_LILLY_AND_COMPANY-DE201012003939

PATIENT
  Age: 71 Year
  Sex: Male

DRUGS (6)
  1. HUMALOG [Suspect]
     Indication: DIABETES MELLITUS
     Route: 058
  2. HUMINSULIN NORMAL [Concomitant]
     Dosage: UNK, UNK
  3. PENTAERYTHRITOL TETRANITRATE [Concomitant]
     Dosage: UNK, UNK
  4. RAMIPRIL [Concomitant]
     Dosage: UNK, UNK
  5. ASPIRIN [Concomitant]
     Dosage: UNK, UNK
  6. METFORMIN [Concomitant]
     Dosage: UNK, UNK

REACTIONS (3)
  - HYPOGLYCAEMIA [None]
  - INCORRECT DOSE ADMINISTERED [None]
  - OFF LABEL USE [None]
